FAERS Safety Report 6575858-0 (Version None)
Quarter: 2010Q1

REPORT INFORMATION
  Report Type: 
  Country: None (occurrence: None)
  Receive Date: 20100209
  Receipt Date: 20100129
  Transmission Date: 20100710
  Serious: Yes (Hospitalization, Other)
  Sender: FDA-Public Use
  Company Number: DE-BRACCO-000500

PATIENT
  Age: 51 Year
  Sex: Female

DRUGS (6)
  1. MULTIHANCE [Suspect]
     Indication: NUCLEAR MAGNETIC RESONANCE IMAGING
     Route: 042
     Dates: start: 20091210, end: 20091210
  2. MULTIHANCE [Suspect]
     Indication: HAEMATURIA
     Route: 042
     Dates: start: 20091210, end: 20091210
  3. IBUPROFEN [Concomitant]
     Dosage: AS NEEDED
  4. FORTECORTIN [Concomitant]
     Dates: start: 20091210
  5. ANTIHISTAMINES [Concomitant]
     Dates: start: 20091210
  6. JODTHYROX [Concomitant]

REACTIONS (8)
  - BLOOD PRESSURE SYSTOLIC INCREASED [None]
  - CONVULSION [None]
  - DYSPNOEA [None]
  - LOSS OF CONSCIOUSNESS [None]
  - NAUSEA [None]
  - PALLOR [None]
  - URINARY INCONTINENCE [None]
  - VOMITING [None]
